FAERS Safety Report 9692215 (Version 3)
Quarter: 2013Q4

REPORT INFORMATION
  Report Type: Report from Study
  Country: US (occurrence: US)
  Receive Date: 20131118
  Receipt Date: 20131121
  Transmission Date: 20140711
  Serious: Yes (Death)
  Sender: FDA-Public Use
  Company Number: US-ROCHE-1279055

PATIENT
  Age: 70 Year
  Sex: Female

DRUGS (2)
  1. XELODA [Suspect]
     Indication: BREAST CANCER METASTATIC
     Dosage: 1/2 DAILY
     Route: 048
     Dates: start: 20130901
  2. ARIMIDEX [Concomitant]
     Route: 042

REACTIONS (2)
  - Death [Fatal]
  - Decreased appetite [Not Recovered/Not Resolved]
